FAERS Safety Report 12535335 (Version 2)
Quarter: 2016Q3

REPORT INFORMATION
  Report Type: Report from Study
  Country: US (occurrence: US)
  Receive Date: 20160707
  Receipt Date: 20160901
  Transmission Date: 20161109
  Serious: Yes (Other)
  Sender: FDA-Public Use
  Company Number: US-ALEXION PHARMACEUTICALS INC-A201604876

PATIENT
  Sex: Female

DRUGS (1)
  1. SOLIRIS [Suspect]
     Active Substance: ECULIZUMAB
     Indication: PAROXYSMAL NOCTURNAL HAEMOGLOBINURIA
     Dosage: UNK, Q2W
     Route: 042

REACTIONS (9)
  - Platelet count decreased [Unknown]
  - Haemoglobin decreased [Unknown]
  - Asthenia [Unknown]
  - Myelodysplastic syndrome [Unknown]
  - Balance disorder [Unknown]
  - Fatigue [Unknown]
  - Dyspnoea [Unknown]
  - Gait disturbance [Unknown]
  - Condition aggravated [Unknown]
